FAERS Safety Report 9867061 (Version 1)
Quarter: 2014Q1

REPORT INFORMATION
  Report Type: Spontaneous
  Country: US (occurrence: None)
  Receive Date: 20140203
  Receipt Date: 20140203
  Transmission Date: 20141002
  Serious: Yes (Other)
  Sender: FDA-Public Use
  Company Number: None

PATIENT
  Age: 18 Year
  Sex: Female
  Weight: 70.31 kg

DRUGS (1)
  1. HYDROCORTISONE [Suspect]
     Indication: ADRENOCORTICAL INSUFFICIENCY ACUTE
     Dosage: DIFFERENT SET AMOTS THREE TIMES DAILY TAKEN BY MOUTH
     Route: 048
     Dates: start: 20091001, end: 20140131

REACTIONS (1)
  - Adrenocortical insufficiency acute [None]
